FAERS Safety Report 14775337 (Version 2)
Quarter: 2023Q1

REPORT INFORMATION
  Report Type: Spontaneous
  Country: US (occurrence: US)
  Receive Date: 20180418
  Receipt Date: 20230131
  Transmission Date: 20230417
  Serious: No
  Sender: FDA-Public Use
  Company Number: US-TAKEDA-2018TUS009957

PATIENT
  Age: 32 Year
  Sex: Female
  Weight: 68 kg

DRUGS (5)
  1. ENTYVIO [Suspect]
     Active Substance: VEDOLIZUMAB
     Indication: Crohn^s disease
     Dosage: 300 MILLIGRAM
     Route: 042
     Dates: start: 2017
  2. HYOSCYAMINE [Suspect]
     Active Substance: HYOSCYAMINE
     Indication: Decreased appetite
     Dosage: UNK
     Route: 048
  3. ZYRTEC [Concomitant]
     Active Substance: CETIRIZINE HYDROCHLORIDE
     Indication: Seasonal allergy
     Dosage: UNK UNK, QD
  4. ASPIRIN [Concomitant]
     Active Substance: ASPIRIN
     Dosage: UNK
  5. CALCIUM CHLORIDE\POTASSIUM CHLORIDE\SODIUM ACETATE\SODIUM CHLORIDE [Concomitant]
     Active Substance: CALCIUM CHLORIDE\POTASSIUM CHLORIDE\SODIUM ACETATE\SODIUM CHLORIDE
     Dosage: UNK

REACTIONS (4)
  - Decreased appetite [Recovering/Resolving]
  - Somnolence [Unknown]
  - Early satiety [Unknown]
  - Pregnancy [Unknown]

NARRATIVE: CASE EVENT DATE: 20171201
